FAERS Safety Report 4906519-9 (Version None)
Quarter: 2006Q1

REPORT INFORMATION
  Report Type: 
  Country: None (occurrence: None)
  Receive Date: 20060206
  Receipt Date: 20060123
  Transmission Date: 20060701
  Serious: Yes (Life-Threatening, Hospitalization)
  Sender: FDA-Public Use
  Company Number: 200600817

PATIENT
  Sex: Male

DRUGS (1)
  1. BOTOX [Suspect]

REACTIONS (3)
  - MUSCULAR WEAKNESS [None]
  - RESPIRATORY ARREST [None]
  - TONGUE PARALYSIS [None]
